FAERS Safety Report 23089055 (Version 2)
Quarter: 2024Q2

REPORT INFORMATION
  Report Type: Spontaneous
  Country: US (occurrence: US)
  Receive Date: 20231020
  Receipt Date: 20240411
  Transmission Date: 20240716
  Serious: No
  Sender: FDA-Public Use
  Company Number: US-PFIZER INC-202300226750

PATIENT
  Age: 47 Year
  Sex: Male

DRUGS (4)
  1. OXBRYTA [Suspect]
     Active Substance: VOXELOTOR
     Dosage: TAKE 5 TABLETS, ORALLY, ONCE DAILY
     Route: 048
     Dates: start: 20230612
  2. OXBRYTA [Suspect]
     Active Substance: VOXELOTOR
     Dosage: TAKE 5 TABLETS (1500MG TOTAL) BY MOUTH DAILY
     Route: 048
     Dates: start: 20230612
  3. OXBRYTA [Suspect]
     Active Substance: VOXELOTOR
     Dosage: 1500 MG, DAILY
     Route: 048
  4. OXBRYTA [Suspect]
     Active Substance: VOXELOTOR
     Dosage: 500MG, 2 TABLETS ONCE DAILY
     Route: 048

REACTIONS (5)
  - Back pain [Unknown]
  - Diarrhoea [Not Recovered/Not Resolved]
  - Pain [Unknown]
  - Wrong technique in product usage process [Unknown]
  - Off label use [Unknown]

NARRATIVE: CASE EVENT DATE: 20230612
